FAERS Safety Report 8851690 (Version 1)
Quarter: 2012Q4

REPORT INFORMATION
  Report Type: 
  Country: US (occurrence: US)
  Receive Date: 20121022
  Receipt Date: 20121022
  Transmission Date: 20130627
  Serious: No
  Sender: FDA-Public Use
  Company Number: US-PFIZER INC-2012262455

PATIENT
  Age: 81 Year
  Sex: Female
  Weight: 90.7 kg

DRUGS (2)
  1. LYRICA [Suspect]
     Indication: SPONDYLITIS
     Dosage: 50 mg, 2x/day
     Dates: start: 201209, end: 20121018
  2. METOPROLOL [Concomitant]
     Indication: BLOOD PRESSURE ABNORMAL
     Dosage: half tablet of 25mg at unknown frequency
     Route: 048

REACTIONS (3)
  - Oedema peripheral [Recovered/Resolved]
  - Weight increased [Unknown]
  - Dizziness [Recovering/Resolving]
